FAERS Safety Report 6919787-9 (Version None)
Quarter: 2010Q3

REPORT INFORMATION
  Report Type: 
  Country: None (occurrence: None)
  Receive Date: 20100811
  Receipt Date: 20100729
  Transmission Date: 20110219
  Serious: Yes (Hospitalization)
  Sender: FDA-Public Use
  Company Number: AR-BRISTOL-MYERS SQUIBB COMPANY-15221963

PATIENT
  Age: 60 Year
  Sex: Male

DRUGS (1)
  1. ONGLYZA [Suspect]
     Indication: DIABETES MELLITUS
     Dosage: INTERRUPTED IN JUL-2010 AND RESTARTED
     Route: 048
     Dates: start: 20100701

REACTIONS (1)
  - SKIN REACTION [None]
